FAERS Safety Report 12240935 (Version 1)
Quarter: 2016Q2

REPORT INFORMATION
  Report Type: Spontaneous
  Country: US (occurrence: None)
  Receive Date: 20160405
  Receipt Date: 20160405
  Transmission Date: 20160815
  Serious: Yes (Other)
  Sender: FDA-Public Use
  Company Number: None

PATIENT
  Age: 84 Year
  Sex: Male
  Weight: 75.3 kg

DRUGS (5)
  1. MEMANTINE. [Concomitant]
     Active Substance: MEMANTINE
  2. MEGESTEROL, 40MG PAR [Suspect]
     Active Substance: MEGESTROL
     Indication: INCREASED APPETITE
     Route: 048
     Dates: start: 20160317, end: 20160404
  3. CITALOPRAM [Concomitant]
     Active Substance: CITALOPRAM HYDROBROMIDE
  4. DONEPEZIL. [Concomitant]
     Active Substance: DONEPEZIL
  5. ADVAIR DISKUS [Concomitant]
     Active Substance: FLUTICASONE PROPIONATE\SALMETEROL XINAFOATE

REACTIONS (1)
  - Deep vein thrombosis [None]

NARRATIVE: CASE EVENT DATE: 20160401
